FAERS Safety Report 17498660 (Version 5)
Quarter: 2020Q4

REPORT INFORMATION
  Report Type: Spontaneous
  Country: US (occurrence: US)
  Receive Date: 20200304
  Receipt Date: 20201113
  Transmission Date: 20210113
  Serious: No
  Sender: FDA-Public Use
  Company Number: US-BIOMARINAP-US-2020-128502

PATIENT
  Age: 32 Year
  Sex: Female

DRUGS (2)
  1. ALDURAZYME [Suspect]
     Active Substance: LARONIDASE
     Dosage: 60.9 MILLIGRAM, QW
     Route: 042
     Dates: start: 20180405
  2. ALDURAZYME [Suspect]
     Active Substance: LARONIDASE
     Indication: MUCOPOLYSACCHARIDOSIS I
     Dosage: 60.9 MILLIGRAM, QW
     Route: 042
     Dates: start: 20090901

REACTIONS (9)
  - Weight increased [Not Recovered/Not Resolved]
  - Insomnia [Unknown]
  - Arthralgia [Unknown]
  - Depression [Unknown]
  - Pain [Unknown]
  - Joint dislocation [Not Recovered/Not Resolved]
  - Quality of life decreased [Unknown]
  - Weight decreased [Recovering/Resolving]
  - Condition aggravated [Unknown]

NARRATIVE: CASE EVENT DATE: 201910
